FAERS Safety Report 7968537-6 (Version None)
Quarter: 2011Q4

REPORT INFORMATION
  Report Type: 
  Country: None (occurrence: None)
  Receive Date: 20111209
  Receipt Date: 20111206
  Transmission Date: 20120403
  Serious: Yes (Other)
  Sender: FDA-Public Use
  Company Number: US-JNJFOC-20111203057

PATIENT
  Sex: Female
  Weight: 71.22 kg

DRUGS (11)
  1. CARBAMAZEPINE [Concomitant]
     Indication: INSOMNIA
     Route: 048
     Dates: start: 20110101
  2. LOSARTAN POTASSIUM [Concomitant]
     Indication: HYPERTENSION
     Route: 048
     Dates: start: 20110801
  3. TORSEMIDE [Concomitant]
     Indication: FLUID RETENTION
     Route: 048
  4. CARBAMAZEPINE [Concomitant]
     Indication: AFFECTIVE DISORDER
     Route: 048
     Dates: start: 20110101
  5. SIMPONI [Suspect]
     Indication: PSORIATIC ARTHROPATHY
     Route: 058
     Dates: start: 20111001
  6. CLONAZEPAM [Concomitant]
     Indication: ANXIETY
     Route: 048
  7. ESTRADIOL [Concomitant]
     Indication: HORMONE REPLACEMENT THERAPY
     Route: 048
  8. ATENOLOL [Concomitant]
     Indication: TACHYCARDIA
     Route: 048
  9. CLONAZEPAM [Concomitant]
     Indication: INSOMNIA
     Route: 048
  10. NEURONTIN [Concomitant]
     Indication: NEURALGIA
     Route: 048
  11. ALBUTEROL [Concomitant]
     Indication: ASTHMA
     Dosage: 1-2 TIMES DAILY AS NEEDED
     Route: 055

REACTIONS (2)
  - RASH PUSTULAR [None]
  - NASOPHARYNGITIS [None]
